FAERS Safety Report 8504474-6 (Version None)
Quarter: 2012Q3

REPORT INFORMATION
  Report Type: 
  Country: None (occurrence: None)
  Receive Date: 20120711
  Receipt Date: 20120629
  Transmission Date: 20120928
  Serious: Yes (Death)
  Sender: FDA-Public Use
  Company Number: FR-PFIZER INC-2012156723

PATIENT
  Age: 58 Year
  Sex: Male

DRUGS (4)
  1. CYTARABINE [Suspect]
     Indication: ACUTE LEUKAEMIA
     Dosage: 1000 MG/M2, 2X/DAY
     Route: 042
     Dates: start: 20120426, end: 20120428
  2. DAUNORUBICIN HYDROCHLORIDE [Suspect]
     Indication: ACUTE LEUKAEMIA
     Dosage: 35 MG/M2, 1X/DAY
     Route: 042
     Dates: start: 20120426, end: 20120427
  3. PLAQUENIL [Concomitant]
     Indication: RHEUMATOID ARTHRITIS
     Dosage: UNK
  4. REMICADE [Concomitant]
     Indication: RHEUMATOID ARTHRITIS
     Dosage: UNK

REACTIONS (2)
  - CEREBRAL HAEMATOMA [None]
  - HEAD INJURY [None]
